FAERS Safety Report 17060930 (Version 2)
Quarter: 2020Q1

REPORT INFORMATION
  Report Type: Report from Study
  Country: US (occurrence: US)
  Receive Date: 20191121
  Receipt Date: 20200103
  Transmission Date: 20200409
  Serious: Yes (Other)
  Sender: FDA-Public Use
  Company Number: NVSC2019US043518

PATIENT
  Age: 25 Year
  Sex: Male
  Weight: 109 kg

DRUGS (3)
  1. ATENOLOL. [Concomitant]
     Active Substance: ATENOLOL
     Indication: HEADACHE
     Dosage: 25 MG
     Route: 048
  2. ATENOLOL. [Concomitant]
     Active Substance: ATENOLOL
     Indication: HYPERTENSION
  3. GILENYA [Suspect]
     Active Substance: FINGOLIMOD HYDROCHLORIDE
     Indication: MULTIPLE SCLEROSIS
     Dosage: 0.5 MG, QD
     Route: 048
     Dates: start: 201402

REACTIONS (9)
  - Tenderness [Recovering/Resolving]
  - Angina pectoris [Recovering/Resolving]
  - Chest discomfort [Unknown]
  - Pain [Recovering/Resolving]
  - Thoracic radiculopathy [Unknown]
  - Chest pain [Unknown]
  - Syringomyelia [Unknown]
  - Asthenia [Recovering/Resolving]
  - Cardiac flutter [Recovering/Resolving]

NARRATIVE: CASE EVENT DATE: 20191106
